FAERS Safety Report 7101735-2 (Version None)
Quarter: 2010Q4

REPORT INFORMATION
  Report Type: 
  Country: None (occurrence: None)
  Receive Date: 20101115
  Receipt Date: 20100205
  Transmission Date: 20110411
  Serious: Yes (Other)
  Sender: FDA-Public Use
  Company Number: TW-ABBOTT-10P-153-0624036-00

PATIENT
  Sex: Male
  Weight: 76.6 kg

DRUGS (1)
  1. HUMIRA [Suspect]
     Indication: RHEUMATOID ARTHRITIS
     Route: 058
     Dates: start: 20090923, end: 20091118

REACTIONS (3)
  - JOINT INJURY [None]
  - PURULENT DISCHARGE [None]
  - STAPHYLOCOCCAL INFECTION [None]
